FAERS Safety Report 5473002-4 (Version None)
Quarter: 2007Q4

REPORT INFORMATION
  Report Type: 
  Country: None (occurrence: None)
  Receive Date: 20071001
  Receipt Date: 20070502
  Transmission Date: 20080405
  Serious: No
  Sender: FDA-Public Use
  Company Number: US-ASTRAZENECA-2007UW03143

PATIENT
  Age: 73 Year
  Sex: Female

DRUGS (5)
  1. ARIMIDEX [Suspect]
     Indication: BREAST CANCER FEMALE
  2. CELEBREX [Concomitant]
  3. IRON [Concomitant]
  4. ALLERGY INJECTIONS [Concomitant]
     Indication: MULTIPLE ALLERGIES
  5. HOLISTIC [Concomitant]

REACTIONS (2)
  - FLUSHING [None]
  - RHEUMATOID ARTHRITIS [None]
